FAERS Safety Report 11603495 (Version 2)
Quarter: 2015Q4

REPORT INFORMATION
  Report Type: Spontaneous
  Country: PE (occurrence: PE)
  Receive Date: 20151007
  Receipt Date: 20151015
  Transmission Date: 20160304
  Serious: Yes (Other)
  Sender: FDA-Public Use
  Company Number: PE-PFIZER INC-2015323160

PATIENT
  Age: 86 Year
  Sex: Female

DRUGS (1)
  1. XALATAN [Suspect]
     Active Substance: LATANOPROST
     Dosage: 1 DROP IN EACH EYE, DAILY
     Route: 047

REACTIONS (3)
  - Erythropsia [Recovering/Resolving]
  - Cataract [Unknown]
  - Glaucoma [Unknown]
